FAERS Safety Report 26116665 (Version 1)
Quarter: 2025Q4

REPORT INFORMATION
  Report Type: Spontaneous
  Country: EU (occurrence: EU)
  Receive Date: 20251203
  Receipt Date: 20251203
  Transmission Date: 20260118
  Serious: Yes (Other)
  Sender: BAYER HEALTHCARE PHARMACEUTICALS INC.
  Company Number: EU-BAYER-2025A157974

PATIENT
  Age: 77 Year
  Sex: Male

DRUGS (3)
  1. NUBEQA [Suspect]
     Active Substance: DAROLUTAMIDE
     Indication: Hormone-dependent prostate cancer
     Dosage: UNK
     Dates: start: 20240712
  2. TAXOTERE [Suspect]
     Active Substance: DOCETAXEL
     Dosage: UNK
     Dates: start: 20240712
  3. TAXOTERE [Suspect]
     Active Substance: DOCETAXEL
     Dosage: UNK

REACTIONS (5)
  - Cardiac disorder [None]
  - Pulmonary mass [None]
  - General physical health deterioration [Recovering/Resolving]
  - Asthenia [None]
  - Dyspnoea exertional [Not Recovered/Not Resolved]

NARRATIVE: CASE EVENT DATE: 20250530
